FAERS Safety Report 10249365 (Version 2)
Quarter: 2014Q2

REPORT INFORMATION
  Report Type: Other
  Country: US (occurrence: US)
  Receive Date: 20140620
  Receipt Date: 20140620
  Transmission Date: 20141212
  Serious: Yes (Hospitalization, Other)
  Sender: FDA-Public Use
  Company Number: US-GSKPPD-2014GSK000134

PATIENT
  Age: 78 Year
  Sex: Female

DRUGS (5)
  1. AVANDIA [Suspect]
     Indication: DIABETES MELLITUS
     Route: 048
     Dates: start: 200310, end: 201012
  2. ALTACE [Concomitant]
  3. ZETIA [Concomitant]
  4. POTASSIUM [Concomitant]
  5. TOPROL [Concomitant]

REACTIONS (2)
  - Cardiac failure congestive [None]
  - Arteriospasm coronary [Recovered/Resolved]
